FAERS Safety Report 4335147-1 (Version None)
Quarter: 2004Q1

REPORT INFORMATION
  Report Type: 
  Country: None (occurrence: None)
  Receive Date: 20040329
  Receipt Date: 20031204
  Transmission Date: 20041129
  Serious: No
  Sender: FDA-Public Use
  Company Number: 03P-163-0244044-00

PATIENT
  Age: 32 Year
  Sex: Female
  Weight: 63.5036 kg

DRUGS (13)
  1. HUMIRA [Suspect]
     Indication: RHEUMATOID ARTHRITIS
     Dosage: 40 MG, 1 IN 2 WK, SUBCUTANEOUS
     Route: 058
     Dates: start: 20030801
  2. PREDNISONE [Concomitant]
  3. LEVOTHYROXINE SODIUM [Concomitant]
  4. PAROXETINE HCL [Concomitant]
  5. SINGULAIR [Concomitant]
  6. HYDROXYCHLOROQUINE PHOSPHATE [Concomitant]
  7. REMURON [Concomitant]
  8. FUSBAR [Concomitant]
  9. MORPHINE SULFATE [Concomitant]
  10. ESOMEPRAZOLE [Concomitant]
  11. GABAPENTIN [Concomitant]
  12. SEROQUEL [Concomitant]
  13. ERYTHROMYCIN [Concomitant]

REACTIONS (2)
  - INFECTION [None]
  - SKIN DISCOLOURATION [None]
